FAERS Safety Report 8579872-5 (Version None)
Quarter: 2012Q3

REPORT INFORMATION
  Report Type: 
  Country: None (occurrence: None)
  Receive Date: 20120808
  Receipt Date: 20120620
  Transmission Date: 20120928
  Serious: Yes (Death, Hospitalization)
  Sender: FDA-Public Use
  Company Number: US-BAXTER-2011BH008014

PATIENT
  Sex: Female

DRUGS (1)
  1. GAMMAGARD LIQUID [Suspect]
     Route: 065
     Dates: end: 20110201

REACTIONS (2)
  - GASTROINTESTINAL HAEMORRHAGE [None]
  - GASTRIC HAEMORRHAGE [None]
